FAERS Safety Report 7085233 (Version 4)
Quarter: 2012Q4

REPORT INFORMATION
  Report Type: 
  Country: US (occurrence: US)
  Receive Date: 20090819
  Receipt Date: 20120830
  Transmission Date: 20130627
  Serious: Yes (Hospitalization)
  Sender: FDA-Public Use
  Company Number: US-BAYER-200929755NA

PATIENT
  Age: 42 Year
  Sex: Female
  Weight: 113.38 kg

DRUGS (9)
  1. YASMIN [Suspect]
     Indication: CONTRACEPTION
     Dosage: UNK
     Dates: start: 200406, end: 200605
  2. YAZ [Suspect]
     Indication: CONTRACEPTION
     Dosage: UNK
     Dates: start: 200605, end: 200708
  3. IBUPROFEN [Concomitant]
     Indication: INFLAMMATION
     Dosage: 600 mg, TID
     Route: 048
  4. MOTRIN [Concomitant]
     Dosage: UNK
     Dates: start: 20051229, end: 200804
  5. ADVIL [Concomitant]
  6. PRILOSEC [Concomitant]
     Indication: DYSPEPSIA
  7. CRANBERRY [Concomitant]
     Indication: URINARY TRACT INFECTION
  8. PROPRANOLOL [Concomitant]
  9. VICODIN [Concomitant]

REACTIONS (4)
  - Deep vein thrombosis [Recovered/Resolved]
  - Pain in extremity [Recovered/Resolved]
  - Oedema peripheral [Recovered/Resolved]
  - Phlebitis [None]
